FAERS Safety Report 4409830-3 (Version None)
Quarter: 2004Q3

REPORT INFORMATION
  Report Type: 
  Country: None (occurrence: None)
  Receive Date: 20040727
  Receipt Date: 20040727
  Transmission Date: 20050211
  Serious: No
  Sender: FDA-Public Use
  Company Number: None

PATIENT
  Age: 63 Year
  Sex: Female

DRUGS (1)
  1. ENBREL [Suspect]
     Indication: RHEUMATOID ARTHRITIS
     Dosage: 25 MG  2X/WEEK  SUBCUTANEOUS
     Route: 058
     Dates: start: 20030613, end: 20031021

REACTIONS (3)
  - EYE INFECTION [None]
  - HERPES SIMPLEX [None]
  - KERATITIS [None]
